FAERS Safety Report 12876975 (Version 8)
Quarter: 2017Q3

REPORT INFORMATION
  Report Type: Report from Study
  Country: BR (occurrence: BR)
  Receive Date: 20161024
  Receipt Date: 20170823
  Transmission Date: 20171127
  Serious: Yes (Hospitalization, Other)
  Sender: FDA-Public Use
  Company Number: BR-GLAXOSMITHKLINE-BR2015GSK135009

PATIENT
  Sex: Female
  Weight: 52 kg

DRUGS (1)
  1. BELIMUMAB [Suspect]
     Active Substance: BELIMUMAB
     Indication: SYSTEMIC LUPUS ERYTHEMATOSUS
     Dosage: UNK
     Dates: start: 20150910

REACTIONS (31)
  - Inappropriate schedule of drug administration [Recovered/Resolved]
  - Toothache [Unknown]
  - Pulpitis dental [Unknown]
  - Apathy [Unknown]
  - Depressed mood [Unknown]
  - Nervousness [Unknown]
  - Drug dose omission [Not Recovered/Not Resolved]
  - Circumstance or information capable of leading to medication error [Unknown]
  - Loss of consciousness [Unknown]
  - Gingival swelling [Unknown]
  - Depression [Unknown]
  - Dizziness [Unknown]
  - Asthenia [Unknown]
  - Foaming at mouth [Unknown]
  - Noninfective gingivitis [Unknown]
  - Pruritus [Unknown]
  - Dyspnoea [Unknown]
  - Blood pressure fluctuation [Unknown]
  - Weight decreased [Unknown]
  - Skin disorder [Unknown]
  - Cough [Unknown]
  - Vision blurred [Unknown]
  - Nausea [Unknown]
  - Headache [Not Recovered/Not Resolved]
  - Mass [Unknown]
  - Hypertension [Unknown]
  - Skin discolouration [Unknown]
  - Pyrexia [Unknown]
  - Palpitations [Unknown]
  - Somnolence [Unknown]
  - Intentional product misuse [Not Recovered/Not Resolved]
